FAERS Safety Report 6408435-2 (Version None)
Quarter: 2009Q4

REPORT INFORMATION
  Report Type: 
  Country: None (occurrence: None)
  Receive Date: 20091021
  Receipt Date: 20091009
  Transmission Date: 20100525
  Serious: Yes (Other)
  Sender: FDA-Public Use
  Company Number: GB-BRISTOL-MYERS SQUIBB COMPANY-14822290

PATIENT
  Age: 81 Year
  Sex: Female
  Weight: 106 kg

DRUGS (4)
  1. GLUCOPHAGE [Suspect]
     Indication: DIABETES MELLITUS
     Dosage: GLUCOPHAGE XR
     Route: 048
     Dates: start: 20090912, end: 20090913
  2. BISOPROLOL [Concomitant]
  3. BUMETANIDE [Concomitant]
  4. FRAGMIN [Concomitant]

REACTIONS (1)
  - SWOLLEN TONGUE [None]
